FAERS Safety Report 4736593-4 (Version None)
Quarter: 2005Q3

REPORT INFORMATION
  Report Type: 
  Country: None (occurrence: None)
  Receive Date: 20050802
  Receipt Date: 20050720
  Transmission Date: 20060218
  Serious: Yes (Hospitalization)
  Sender: FDA-Public Use
  Company Number: 2005076117

PATIENT
  Age: 74 Year
  Sex: Female

DRUGS (2)
  1. BEXTRA [Suspect]
     Indication: OSTEOARTHRITIS
     Dosage: 10 MG (10 MG, 1 IN 1 D)
     Dates: start: 20050307, end: 20050307
  2. AMOXICILLIN [Concomitant]

REACTIONS (3)
  - ERYTHEMA [None]
  - RASH [None]
  - VASCULITIS [None]
